FAERS Safety Report 7282493-8 (Version None)
Quarter: 2011Q1

REPORT INFORMATION
  Report Type: 
  Country: None (occurrence: None)
  Receive Date: 20110209
  Receipt Date: 20110128
  Transmission Date: 20110831
  Serious: Yes (Death, Hospitalization)
  Sender: FDA-Public Use
  Company Number: CA-JNJFOC-20110107969

PATIENT
  Age: 29 Year
  Sex: Female

DRUGS (2)
  1. EXTRA STRENGTH TYLENOL [Suspect]
     Indication: PRODUCT USED FOR UNKNOWN INDICATION
  2. EXTRA STRENGTH TYLENOL [Suspect]

REACTIONS (5)
  - HYPOGLYCAEMIA [None]
  - HEPATIC FAILURE [None]
  - INTENTIONAL OVERDOSE [None]
  - RENAL FAILURE [None]
  - LACTIC ACIDOSIS [None]
